FAERS Safety Report 7328237-2 (Version None)
Quarter: 2011Q1

REPORT INFORMATION
  Report Type: 
  Country: None (occurrence: None)
  Receive Date: 20110303
  Receipt Date: 20110223
  Transmission Date: 20110831
  Serious: Yes (Hospitalization)
  Sender: FDA-Public Use
  Company Number: JP-ALEXION PHARMACEUTICALS INC.-A201100091

PATIENT
  Age: 46 Year
  Sex: Female

DRUGS (9)
  1. LANSOPRAZOLE [Concomitant]
     Dosage: 15 MG, UNK
     Dates: start: 20050422
  2. SOLIRIS [Suspect]
     Indication: PAROXYSMAL NOCTURNAL HAEMOGLOBINURIA
     Dosage: 600 MG, QW
     Route: 042
     Dates: start: 20101129
  3. RED BLOOD CELLS [Concomitant]
  4. PREDNISOLONE ACETATE [Concomitant]
     Dosage: 10 MG, UNK
     Dates: start: 20081009
  5. SOLIRIS [Suspect]
     Dosage: 900 MG, UNK
     Route: 042
     Dates: start: 20101227
  6. FOLIC ACID [Concomitant]
     Dosage: 5 MG, UNK
     Dates: start: 20050617
  7. RED BLOOD CELLS, CONCENTRATED [Concomitant]
  8. BROTIZOLAM [Concomitant]
     Dosage: 0.25 MG, UNK
     Dates: start: 20040524
  9. ASCORBIC ACID W/CALCIUM            /01259201/ [Concomitant]
     Dosage: 2 G, UNK
     Dates: start: 20040524

REACTIONS (5)
  - ASCITES [None]
  - ANAEMIA [None]
  - HYPOALBUMINAEMIA [None]
  - GAIT DISTURBANCE [None]
  - HAEMOLYSIS [None]
